FAERS Safety Report 9928490 (Version 2)
Quarter: 2014Q1

REPORT INFORMATION
  Report Type: Spontaneous
  Country: US (occurrence: US)
  Receive Date: 20140227
  Receipt Date: 20140319
  Transmission Date: 20141002
  Serious: Yes (Hospitalization)
  Sender: FDA-Public Use
  Company Number: US-JNJFOC-20140213971

PATIENT
  Age: 75 Year
  Sex: Female
  Weight: 87.09 kg

DRUGS (7)
  1. INVOKANA [Suspect]
     Indication: PRODUCT USED FOR UNKNOWN INDICATION
     Route: 048
  2. INSULIN LISPRO [Concomitant]
     Indication: DIABETES MELLITUS
  3. THEOPHYLLINE [Concomitant]
     Indication: ASTHMA
  4. OMEPRAZOLE [Concomitant]
     Indication: GASTROOESOPHAGEAL REFLUX DISEASE
  5. PREDNISONE [Concomitant]
     Indication: ASTHMA
  6. ATORVASTATIN [Concomitant]
  7. LANTUS [Concomitant]

REACTIONS (2)
  - Pemphigoid [Recovering/Resolving]
  - Infection [Unknown]
